FAERS Safety Report 13167477 (Version 1)
Quarter: 2017Q1

REPORT INFORMATION
  Report Type: Spontaneous
  Country: US (occurrence: US)
  Receive Date: 20170131
  Receipt Date: 20170131
  Transmission Date: 20170428
  Serious: Yes (Other)
  Sender: FDA-Public Use
  Company Number: US-PFIZER INC-2017034804

PATIENT
  Sex: Female

DRUGS (1)
  1. XELJANZ [Suspect]
     Active Substance: TOFACITINIB CITRATE

REACTIONS (5)
  - Liver function test abnormal [Unknown]
  - Pain in extremity [Unknown]
  - Hand deformity [Unknown]
  - Synovial disorder [Unknown]
  - Nodal osteoarthritis [Unknown]
